FAERS Safety Report 15749630 (Version 6)
Quarter: 2019Q3

REPORT INFORMATION
  Report Type: Report from Study
  Country: None (occurrence: GB)
  Receive Date: 20181221
  Receipt Date: 20190921
  Transmission Date: 20191004
  Serious: Yes (Hospitalization, Other)
  Sender: FDA-Public Use
  Company Number: GB-ABBVIE-18S-167-2597506-00

PATIENT
  Age: 50 Year
  Sex: Male

DRUGS (10)
  1. DUODOPA [Suspect]
     Active Substance: CARBIDOPA\LEVODOPA
     Indication: PARKINSON^S DISEASE
     Dosage: CD: 5.9ML/HOUR ED: 1ML 100ML CASSETTE DAILY
     Route: 050
  2. DUODOPA [Suspect]
     Active Substance: CARBIDOPA\LEVODOPA
     Dosage: 100ML CASSETTE DAILY, 5MG/1ML, 20MG/1ML
     Route: 050
  3. DUODOPA [Suspect]
     Active Substance: CARBIDOPA\LEVODOPA
     Dosage: MD 10.0, CR 5.9 ML, INCREASED FORM ED LOCKOUT TIME ONE TO TWO HOURS
     Route: 050
  4. DUODOPA [Suspect]
     Active Substance: CARBIDOPA\LEVODOPA
     Dosage: MD 10. CD 5.9, ED 1.5, MORNING DOSE LOCKOUT 20 HOURS ,EXTRA DOSE LOCKOUT 1 HOUR
     Route: 050
  5. DUODOPA [Suspect]
     Active Substance: CARBIDOPA\LEVODOPA
     Dosage: MD 9.5ML, CD 5.7 ML, 5MG/1ML, 20MG/1ML
     Route: 050
  6. APOMORPHINE [Suspect]
     Active Substance: APOMORPHINE
     Indication: PRODUCT USED FOR UNKNOWN INDICATION
     Dosage: PEN
     Route: 065
  7. OPICOPONE [Concomitant]
     Indication: PRODUCT USED FOR UNKNOWN INDICATION
  8. MADOPAR CR [Concomitant]
     Active Substance: BENSERAZIDE HYDROCHLORIDE\LEVODOPA
     Indication: PRODUCT USED FOR UNKNOWN INDICATION
  9. DUODOPA [Suspect]
     Active Substance: CARBIDOPA\LEVODOPA
     Dosage: MD REDUCED BY 0.5MLS, CD REDUCED BY 0.2MLS
     Route: 050
  10. DUODOPA [Suspect]
     Active Substance: CARBIDOPA\LEVODOPA
     Dosage: ED: 2ML 100ML CASSETTE DAILY
     Route: 050

REACTIONS (32)
  - Memory impairment [Unknown]
  - Therapeutic product effect incomplete [Recovered/Resolved]
  - Hallucination, auditory [Unknown]
  - Depressed mood [Unknown]
  - Dyskinesia [Not Recovered/Not Resolved]
  - Hyperkinesia [Unknown]
  - Freezing phenomenon [Not Recovered/Not Resolved]
  - Intentional self-injury [Unknown]
  - Autophobia [Unknown]
  - Social avoidant behaviour [Unknown]
  - Erythema [Unknown]
  - Anxiety [Unknown]
  - Confusional state [Unknown]
  - Insomnia [Unknown]
  - On and off phenomenon [Unknown]
  - Fatigue [Unknown]
  - Tremor [Unknown]
  - Unintentional medical device removal [Unknown]
  - Dystonia [Unknown]
  - Dyskinesia [Not Recovered/Not Resolved]
  - Wrong technique in device usage process [Unknown]
  - Sluggishness [Not Recovered/Not Resolved]
  - Device dislocation [Unknown]
  - Frustration tolerance decreased [Unknown]
  - Device breakage [Unknown]
  - Device leakage [Unknown]
  - Stoma site infection [Unknown]
  - Negativism [Unknown]
  - Incorrect dose administered [Unknown]
  - Fatigue [Unknown]
  - Overdose [Unknown]
  - Amnesia [Not Recovered/Not Resolved]

NARRATIVE: CASE EVENT DATE: 2018
